FAERS Safety Report 19545327 (Version 2)
Quarter: 2021Q3

REPORT INFORMATION
  Report Type: Report from Study
  Country: US (occurrence: US)
  Receive Date: 20210714
  Receipt Date: 20210909
  Transmission Date: 20211014
  Serious: Yes (Hospitalization)
  Sender: FDA-Public Use
  Company Number: US-BIOGEN-2020BI00914174

PATIENT
  Sex: Female

DRUGS (1)
  1. TYSABRI [Suspect]
     Active Substance: NATALIZUMAB
     Indication: MULTIPLE SCLEROSIS
     Route: 065
     Dates: start: 20151006

REACTIONS (10)
  - Hepatic steatosis [Unknown]
  - Hepatitis alcoholic [Unknown]
  - Intervertebral disc protrusion [Unknown]
  - Abdominal pain lower [Unknown]
  - Hepatic encephalopathy [Unknown]
  - Multiple sclerosis relapse [Unknown]
  - Fatigue [Unknown]
  - Headache [Unknown]
  - Alcoholism [Unknown]
  - Fibromyalgia [Unknown]
